FAERS Safety Report 5643938-X (Version None)
Quarter: 2008Q1

REPORT INFORMATION
  Report Type: 
  Country: None (occurrence: None)
  Receive Date: 20080226
  Receipt Date: 20080220
  Transmission Date: 20080703
  Serious: Yes (Other)
  Sender: FDA-Public Use
  Company Number: CHPA2008US03163

PATIENT

DRUGS (1)
  1. GAS-X EXTSTR CHEW TABS PEPPERMING CREME (NCH)(SIMETHICONE) CHEWABLE TA [Suspect]
     Indication: FLATULENCE
     Dosage: 1000 MG, ORAL
     Route: 048
     Dates: start: 20080220

REACTIONS (2)
  - DYSPNOEA [None]
  - OVERDOSE [None]
